FAERS Safety Report 6674404-0 (Version None)
Quarter: 2010Q2

REPORT INFORMATION
  Report Type: 
  Country: None (occurrence: None)
  Receive Date: 20100409
  Receipt Date: 20100401
  Transmission Date: 20101027
  Serious: Yes (Hospitalization)
  Sender: FDA-Public Use
  Company Number: NL-BAXTER-2010BH008809

PATIENT
  Age: 6 Year
  Sex: Female

DRUGS (6)
  1. GAMMAGARD S/D [Suspect]
     Indication: GUILLAIN-BARRE SYNDROME
     Route: 042
     Dates: start: 20100304, end: 20100304
  2. GAMMAGARD S/D [Suspect]
     Route: 042
     Dates: start: 20100304, end: 20100304
  3. GAMMAGARD S/D [Suspect]
     Route: 042
     Dates: start: 20060320, end: 20100204
  4. SODIUM CHLORIDE 0.9% IN PLASTIC CONTAINER [Suspect]
     Indication: INTRAVENOUS CATHETER MANAGEMENT
     Route: 065
     Dates: start: 20100304, end: 20100304
  5. RITUXIMAB [Concomitant]
  6. METHOTREXATE [Concomitant]

REACTIONS (1)
  - PNEUMONIA [None]
